FAERS Safety Report 9014353 (Version 1)
Quarter: 2013Q1

REPORT INFORMATION
  Report Type: Spontaneous
  Country: US (occurrence: US)
  Receive Date: 20130115
  Receipt Date: 20130115
  Transmission Date: 20140127
  Serious: No
  Sender: FDA-Public Use
  Company Number: US-PFIZER INC-2013014820

PATIENT
  Age: 52 Year
  Sex: Female
  Weight: 107 kg

DRUGS (2)
  1. CALAN SR [Suspect]
     Indication: ARRHYTHMIA
     Dosage: 240 MG, DAILY
  2. KLONOPIN [Concomitant]
     Dosage: 0.5 MG, 2X/DAY

REACTIONS (1)
  - Oedema peripheral [Not Recovered/Not Resolved]
